FAERS Safety Report 12940456 (Version 2)
Quarter: 2016Q4

REPORT INFORMATION
  Report Type: Report from Study
  Country: None (occurrence: CA)
  Receive Date: 20161114
  Receipt Date: 20161228
  Transmission Date: 20170207
  Serious: Yes (Hospitalization, Other)
  Sender: FDA-Public Use
  Company Number: CA-ABBVIE-16P-028-1778049-00

PATIENT
  Age: 20 Year
  Sex: Female
  Weight: 65.83 kg

DRUGS (1)
  1. LUPRON DEPOT [Suspect]
     Active Substance: LEUPROLIDE ACETATE
     Indication: ENDOMETRIOSIS
     Route: 030
     Dates: start: 201104, end: 201112

REACTIONS (17)
  - Anal sphincter atony [Recovering/Resolving]
  - Pelvic pain [Recovering/Resolving]
  - Ovarian cyst [Not Recovered/Not Resolved]
  - Vomiting [Recovering/Resolving]
  - Muscle tightness [Not Recovered/Not Resolved]
  - Endometriosis [Recovered/Resolved]
  - Hot flush [Recovered/Resolved]
  - Genital disorder female [Recovered/Resolved]
  - Loss of consciousness [Recovered/Resolved]
  - Abdominal pain upper [Not Recovered/Not Resolved]
  - Weight decreased [Not Recovered/Not Resolved]
  - Endometriosis [Recovering/Resolving]
  - Endometriosis [Not Recovered/Not Resolved]
  - Endometriosis [Unknown]
  - Malaise [Unknown]
  - Abdominal pain [Not Recovered/Not Resolved]
  - Pelvic pain [Recovered/Resolved]

NARRATIVE: CASE EVENT DATE: 201201
